FAERS Safety Report 9600070 (Version 2)
Quarter: 2013Q4

REPORT INFORMATION
  Report Type: Spontaneous
  Country: US (occurrence: US)
  Receive Date: 20131004
  Receipt Date: 20131004
  Transmission Date: 20140711
  Serious: No
  Sender: FDA-Public Use
  Company Number: US-AMGEN-USASP2013022516

PATIENT
  Age: 42 Year
  Sex: Male
  Weight: 113.38 kg

DRUGS (3)
  1. ENBREL [Suspect]
     Indication: PSORIATIC ARTHROPATHY
     Dosage: 50 MG, EVERY WEEK
     Route: 058
     Dates: start: 20130205
  2. SIMVASTATIN [Concomitant]
     Dosage: 5 MG, UNK
  3. FISH OIL [Concomitant]
     Dosage: UNK

REACTIONS (2)
  - Gingivitis [Unknown]
  - Nasopharyngitis [Unknown]
